FAERS Safety Report 6255520-4 (Version None)
Quarter: 2009Q3

REPORT INFORMATION
  Report Type: 
  Country: None (occurrence: None)
  Receive Date: 20090702
  Receipt Date: 20090624
  Transmission Date: 20100115
  Serious: Yes (Hospitalization)
  Sender: FDA-Public Use
  Company Number: FR-AMGEN-US353374

PATIENT
  Sex: Female

DRUGS (3)
  1. ENBREL [Suspect]
     Indication: RHEUMATOID ARTHRITIS
     Route: 058
     Dates: start: 20090401, end: 20090601
  2. CORTANCYL [Suspect]
     Route: 048
  3. METOJECT [Suspect]
     Indication: RHEUMATOID ARTHRITIS
     Dosage: 15 MG TOTAL WEEKLY

REACTIONS (2)
  - HERPES ZOSTER OPHTHALMIC [None]
  - PUNCTATE KERATITIS [None]
